FAERS Safety Report 23787624 (Version 1)
Quarter: 2024Q2

REPORT INFORMATION
  Report Type: Spontaneous
  Country: ES (occurrence: ES)
  Receive Date: 20240426
  Receipt Date: 20240426
  Transmission Date: 20240716
  Serious: Yes (Life-Threatening, Hospitalization, Other)
  Sender: FDA-Public Use
  Company Number: None

PATIENT
  Age: 77 Year
  Sex: Female

DRUGS (3)
  1. ORENCIA [Suspect]
     Active Substance: ABATACEPT
     Indication: Rheumatoid arthritis
     Dosage: ORENCIA 125 MG SOLUTION FOR INJECTION IN PRE-FILLED PEN, 4 PRE-FILLED PENS OF 1 ML
     Route: 058
     Dates: start: 20240202, end: 20240330
  2. TRUXIMA [Suspect]
     Active Substance: RITUXIMAB-ABBS
     Indication: Rheumatoid arthritis
     Dosage: TRUXIMA 500 MG CONCENTRATE FOR SOLUTION FOR INFUSION, 1 VIAL OF 50 ML
     Route: 042
     Dates: start: 20190830, end: 20231015
  3. BOSENTAN AUROVITAS [Concomitant]
     Indication: Scleroderma
     Dosage: BOSENTAN AUROVITAS 62.5 MG EFG FILM-COATED TABLETS, 56 TABLETS
     Route: 048
     Dates: start: 20180410

REACTIONS (1)
  - Metastasis [Unknown]

NARRATIVE: CASE EVENT DATE: 20240322
